FAERS Safety Report 14601540 (Version 10)
Quarter: 2018Q4

REPORT INFORMATION
  Report Type: Report from Study
  Country: CA (occurrence: CA)
  Receive Date: 20180306
  Receipt Date: 20181012
  Transmission Date: 20190204
  Serious: Yes (Other)
  Sender: FDA-Public Use
  Company Number: CA-ROCHE-1537653

PATIENT
  Age: 74 Year
  Sex: Female

DRUGS (19)
  1. RITUXAN [Suspect]
     Active Substance: RITUXIMAB
     Route: 042
     Dates: start: 20180322
  2. METHOTREXATE. [Suspect]
     Active Substance: METHOTREXATE
     Indication: PRODUCT USED FOR UNKNOWN INDICATION
     Route: 065
  3. DIPHENHYDRAMINE HCL [Concomitant]
     Active Substance: DIPHENHYDRAMINE HYDROCHLORIDE
     Indication: PREMEDICATION
     Route: 048
     Dates: start: 20150211
  4. ACETAMINOPHEN. [Concomitant]
     Active Substance: ACETAMINOPHEN
     Indication: PREMEDICATION
     Route: 048
     Dates: start: 20150211
  5. METHYLPREDNISOLONE. [Concomitant]
     Active Substance: METHYLPREDNISOLONE
     Indication: PREMEDICATION
     Route: 042
     Dates: start: 20150211
  6. FLUCONAZOLE. [Suspect]
     Active Substance: FLUCONAZOLE
     Dosage: FOR 10 DAYS
     Route: 065
  7. BISOPROLOL [Concomitant]
     Active Substance: BISOPROLOL
  8. VENLAFAXINE [Concomitant]
     Active Substance: VENLAFAXINE HYDROCHLORIDE
  9. SULFASALAZINE. [Concomitant]
     Active Substance: SULFASALAZINE
  10. DIPHENHYDRAMINE HCL [Concomitant]
     Active Substance: DIPHENHYDRAMINE HYDROCHLORIDE
     Route: 048
     Dates: start: 20171004
  11. RITUXAN [Suspect]
     Active Substance: RITUXIMAB
     Indication: RHEUMATOID ARTHRITIS
     Route: 042
     Dates: start: 20150211
  12. ACETAMINOPHEN. [Concomitant]
     Active Substance: ACETAMINOPHEN
     Route: 048
     Dates: start: 20171004
  13. RITUXAN [Suspect]
     Active Substance: RITUXIMAB
     Route: 042
     Dates: start: 20171004
  14. METHYLPREDNISOLONE. [Concomitant]
     Active Substance: METHYLPREDNISOLONE
     Route: 042
     Dates: start: 20171004
  15. FOLIC ACID. [Concomitant]
     Active Substance: FOLIC ACID
  16. FLUCONAZOLE. [Suspect]
     Active Substance: FLUCONAZOLE
     Indication: ORAL FUNGAL INFECTION
     Route: 065
  17. LASIX [Concomitant]
     Active Substance: FUROSEMIDE
  18. RITUXAN [Suspect]
     Active Substance: RITUXIMAB
     Route: 042
     Dates: start: 20160229
  19. HYDROXYQUINOLINE [Concomitant]

REACTIONS (37)
  - Blood pressure decreased [Recovered/Resolved]
  - Infusion related reaction [Recovering/Resolving]
  - Blood pressure decreased [Unknown]
  - Hypotension [Unknown]
  - Pyrexia [Recovered/Resolved]
  - Poor peripheral circulation [Unknown]
  - Fall [Unknown]
  - Dizziness [Recovering/Resolving]
  - Arthralgia [Unknown]
  - Therapy non-responder [Unknown]
  - Tongue coated [Not Recovered/Not Resolved]
  - Erythema [Recovered/Resolved]
  - Dyspnoea [Unknown]
  - Oral disorder [Recovered/Resolved]
  - Neck pain [Unknown]
  - Oral fungal infection [Not Recovered/Not Resolved]
  - Rash [Not Recovered/Not Resolved]
  - Photosensitivity reaction [Unknown]
  - Peripheral swelling [Recovered/Resolved]
  - Rash erythematous [Not Recovered/Not Resolved]
  - Skin disorder [Unknown]
  - Dry skin [Not Recovered/Not Resolved]
  - Hypotension [Unknown]
  - Oropharyngeal pain [Recovered/Resolved]
  - Nasopharyngitis [Recovered/Resolved]
  - Erythema [Not Recovered/Not Resolved]
  - Constipation [Unknown]
  - Hypoaesthesia [Recovered/Resolved]
  - Heart rate abnormal [Unknown]
  - Oxygen saturation decreased [Unknown]
  - Tongue blistering [Recovered/Resolved]
  - Tongue disorder [Not Recovered/Not Resolved]
  - Tongue oedema [Unknown]
  - Deafness [Unknown]
  - Fatigue [Recovered/Resolved]
  - Mouth ulceration [Not Recovered/Not Resolved]
  - Blood pressure systolic abnormal [Unknown]

NARRATIVE: CASE EVENT DATE: 20150211
